FAERS Safety Report 11082559 (Version 1)
Quarter: 2015Q2

REPORT INFORMATION
  Report Type: Spontaneous
  Country: FR (occurrence: FR)
  Receive Date: 20150501
  Receipt Date: 20150501
  Transmission Date: 20150821
  Serious: Yes (Other)
  Sender: FDA-Public Use
  Company Number: FR-MYLANLABS-2015M1014690

PATIENT

DRUGS (3)
  1. CLORAZEPIC ACID [Suspect]
     Active Substance: CLORAZEPIC ACID
     Route: 065
  2. ACEPROMETAZINE [Suspect]
     Active Substance: ACEPROMETAZINE
     Route: 065
  3. ACEPROMAZINE [Suspect]
     Active Substance: ACEPROMAZINE
     Route: 065

REACTIONS (2)
  - Self-medication [Unknown]
  - Parkinson^s disease [Recovering/Resolving]
